FAERS Safety Report 8564040-3 (Version None)
Quarter: 2012Q3

REPORT INFORMATION
  Report Type: 
  Country: None (occurrence: None)
  Receive Date: 20120803
  Receipt Date: 20120725
  Transmission Date: 20120928
  Serious: No
  Sender: FDA-Public Use
  Company Number: US-COVIDIEN/TYCO HEALTHCARE/MALLINCKRODT-T201202899

PATIENT
  Sex: Female

DRUGS (2)
  1. AMLODIPINE BESYLATE [Concomitant]
     Indication: BREAKTHROUGH PAIN
     Dosage: 15 MG, Q 6 HOURS PRN
     Route: 048
  2. EXALGO [Suspect]
     Indication: PAIN
     Dosage: 12 MG, QD
     Route: 048
     Dates: start: 20120601

REACTIONS (3)
  - DRUG INEFFECTIVE [None]
  - WRONG TECHNIQUE IN DRUG USAGE PROCESS [None]
  - TOOTH FRACTURE [None]
